FAERS Safety Report 8526044-6 (Version None)
Quarter: 2012Q3

REPORT INFORMATION
  Report Type: 
  Country: None (occurrence: None)
  Receive Date: 20120720
  Receipt Date: 20120708
  Transmission Date: 20120928
  Serious: Yes (Congenital Anomaly, Other)
  Sender: FDA-Public Use
  Company Number: US-ELI_LILLY_AND_COMPANY-US201207002477

PATIENT

DRUGS (2)
  1. PROZAC [Suspect]
     Route: 064
  2. PROZAC [Suspect]
     Route: 064

REACTIONS (3)
  - FOETAL EXPOSURE DURING PREGNANCY [None]
  - HYPOSPADIAS [None]
  - ASPERGER'S DISORDER [None]
